FAERS Safety Report 8987449 (Version 1)
Quarter: 2012Q4

REPORT INFORMATION
  Report Type: 
  Country: US (occurrence: US)
  Receive Date: 20121227
  Receipt Date: 20121227
  Transmission Date: 20130627
  Serious: Yes (Other)
  Sender: FDA-Public Use
  Company Number: US-BAYER-2012-133380

PATIENT
  Age: 66 Year
  Sex: Male

DRUGS (2)
  1. NEXAVAR [Suspect]
     Indication: LIVER, CANCER OF
     Dosage: 400 mg, BID
     Route: 048
     Dates: start: 20121206, end: 20121210
  2. CHEMOTHERAPEUTICS NOS [Concomitant]
     Route: 042

REACTIONS (6)
  - Aphagia [Recovering/Resolving]
  - Nausea [Recovered/Resolved]
  - Oral discomfort [Recovering/Resolving]
  - Throat irritation [Recovering/Resolving]
  - Dysgeusia [Recovering/Resolving]
  - Oropharyngeal pain [Recovering/Resolving]
